FAERS Safety Report 6882095-9 (Version None)
Quarter: 2010Q3

REPORT INFORMATION
  Report Type: 
  Country: None (occurrence: None)
  Receive Date: 20100728
  Receipt Date: 20100728
  Transmission Date: 20110219
  Serious: Yes (Hospitalization)
  Sender: FDA-Public Use
  Company Number: None

PATIENT
  Sex: Male
  Weight: 90.7 kg

DRUGS (2)
  1. CARBOPLATIN [Suspect]
     Dosage: 1902 MG
     Dates: end: 20100618
  2. TAXOL [Suspect]
     Dosage: 575 MG
     Dates: end: 20100618

REACTIONS (7)
  - DEHYDRATION [None]
  - DYSPHAGIA [None]
  - NAUSEA [None]
  - PAIN [None]
  - RADIATION OESOPHAGITIS [None]
  - TOOTH DISORDER [None]
  - VOMITING [None]
